FAERS Safety Report 12697107 (Version 1)
Quarter: 2016Q3

REPORT INFORMATION
  Report Type: Spontaneous
  Country: US (occurrence: None)
  Receive Date: 20160829
  Receipt Date: 20160829
  Transmission Date: 20161109
  Serious: Yes (Other)
  Sender: FDA-Public Use
  Company Number: None

PATIENT
  Age: 33 Year
  Sex: Female
  Weight: 55.79 kg

DRUGS (13)
  1. PULMOZYME [Concomitant]
     Active Substance: DORNASE ALFA
  2. VITAMIN D [Concomitant]
     Active Substance: CHOLECALCIFEROL
  3. AZITHROMYCIN ANHYDROUS. [Concomitant]
     Active Substance: AZITHROMYCIN ANHYDROUS
  4. ADEK MULTI VITAMIN [Concomitant]
  5. ZENPEP [Concomitant]
     Active Substance: PANCRELIPASE AMYLASE\PANCRELIPASE LIPASE\PANCRELIPASE PROTEASE
  6. XANAX [Concomitant]
     Active Substance: ALPRAZOLAM
  7. AMIKACIN SUL, 500 MG [Suspect]
     Active Substance: AMIKACIN SULFATE
     Indication: MYCOBACTERIUM AVIUM COMPLEX INFECTION
     Dosage: 1 INJECTION(S) ONCE A DAY INTO A VEIN
     Route: 042
  8. IMEPENIEM [Concomitant]
  9. CAYSTON [Concomitant]
     Active Substance: AZTREONAM
  10. AMIKACIN SULFATE INJECTION USP, 500 MG [Suspect]
     Active Substance: AMIKACIN SULFATE
     Indication: MYCOBACTERIUM AVIUM COMPLEX INFECTION
     Dosage: 1 INJECTION(S) ONCE A DAY INTO A VEIN
     Route: 042
     Dates: start: 20160314, end: 20160406
  11. TOPIMIRATE [Concomitant]
  12. CLOFAZAMINE [Concomitant]
  13. RIZATRIPTIN [Concomitant]

REACTIONS (5)
  - Infusion site irritation [None]
  - Blister [None]
  - Inflammation [None]
  - Infusion site swelling [None]
  - Burning sensation [None]

NARRATIVE: CASE EVENT DATE: 20160314
